FAERS Safety Report 4589245-8 (Version None)
Quarter: 2005Q1

REPORT INFORMATION
  Report Type: 
  Country: None (occurrence: None)
  Receive Date: 20050216
  Receipt Date: 20050208
  Transmission Date: 20050727
  Serious: Yes (Other)
  Sender: FDA-Public Use
  Company Number: 2005026953

PATIENT
  Sex: Male

DRUGS (3)
  1. MACUGEN [Suspect]
     Indication: ILL-DEFINED DISORDER
     Dosage: (1 IN 6 WK), INTRAVENOUS
     Route: 042
     Dates: start: 20050101
  2. CORTICOSTEROID NOS (CORTICOSTEROID NOS) [Concomitant]
  3. CLAVULIN (AMOXICILLIN TRIHYDRATE, CLAVULANATE POTASSIUM) [Concomitant]

REACTIONS (2)
  - ENDOPHTHALMITIS [None]
  - UVEITIS [None]
